FAERS Safety Report 5144320-4 (Version None)
Quarter: 2006Q4

REPORT INFORMATION
  Report Type: 
  Country: None (occurrence: None)
  Receive Date: 20061030
  Receipt Date: 20061018
  Transmission Date: 20070319
  Serious: Yes (Hospitalization)
  Sender: FDA-Public Use
  Company Number: 2006AL003237

PATIENT
  Age: 32 Year
  Sex: Female

DRUGS (5)
  1. DEXAMETHASONE [Suspect]
     Indication: PREMEDICATION
  2. DOXORUBICIN HCL [Concomitant]
  3. CYCLOPHOSPHAMIDE [Concomitant]
  4. DOCETAXEL [Concomitant]
  5. PEGFILGRASTIM [Concomitant]

REACTIONS (2)
  - FEBRILE NEUTROPENIA [None]
  - LEUKOCYTOSIS [None]
